FAERS Safety Report 10640642 (Version 1)
Quarter: 2014Q4

REPORT INFORMATION
  Report Type: Spontaneous
  Country: US (occurrence: None)
  Receive Date: 20141208
  Receipt Date: 20141208
  Transmission Date: 20150529
  Serious: No
  Sender: FDA-Public Use
  Company Number: None

PATIENT

DRUGS (1)
  1. REVATIO [Suspect]
     Active Substance: SILDENAFIL CITRATE
     Dosage: SUSPENSION ?INJECTION?SYRINGE

REACTIONS (2)
  - Product formulation issue [None]
  - Circumstance or information capable of leading to medication error [None]
